FAERS Safety Report 10543166 (Version 1)
Quarter: 2014Q4

REPORT INFORMATION
  Report Type: Spontaneous
  Country: SA (occurrence: SA)
  Receive Date: 20141027
  Receipt Date: 20141027
  Transmission Date: 20150529
  Serious: Yes (Hospitalization)
  Sender: FDA-Public Use
  Company Number: SA-RANBAXY-2014R1-86914

PATIENT
  Age: 46 Year
  Sex: Male

DRUGS (2)
  1. CIPROFLOXACIN. [Suspect]
     Active Substance: CIPROFLOXACIN
     Indication: URINARY TRACT INFECTION
     Dosage: 250 MG, BID
     Route: 048
  2. CIPROFLOXACIN. [Suspect]
     Active Substance: CIPROFLOXACIN
     Indication: PSEUDOMONAS INFECTION

REACTIONS (4)
  - Hyperreflexia [Recovering/Resolving]
  - Metabolic encephalopathy [Recovered/Resolved]
  - Myoclonus [Recovering/Resolving]
  - Asterixis [Recovering/Resolving]
